FAERS Safety Report 8919306 (Version 1)
Quarter: 2012Q4

REPORT INFORMATION
  Report Type: 
  Country: BR (occurrence: BR)
  Receive Date: 20121121
  Receipt Date: 20121121
  Transmission Date: 20130627
  Serious: Yes (Hospitalization, Other)
  Sender: FDA-Public Use
  Company Number: BR-PFIZER INC-2012288031

PATIENT
  Sex: Female

DRUGS (3)
  1. FRONTAL [Suspect]
     Indication: DEPRESSION
     Dosage: 0.5 mg, 1x/day
     Route: 048
     Dates: start: 2010
  2. LYRICA [Suspect]
     Indication: RHEUMATISM
     Dosage: 75 mg, 1x/day
     Route: 048
     Dates: start: 2002
  3. LYRICA [Suspect]
     Indication: PAIN IN SPINE

REACTIONS (2)
  - Breast cancer [Unknown]
  - Off label use [Not Recovered/Not Resolved]
